FAERS Safety Report 13713049 (Version 5)
Quarter: 2019Q1

REPORT INFORMATION
  Report Type: Spontaneous
  Country: US (occurrence: US)
  Receive Date: 20170704
  Receipt Date: 20190315
  Transmission Date: 20190417
  Serious: Yes (Life-Threatening, Hospitalization)
  Sender: FDA-Public Use
  Company Number: US-BIOGEN-2017BI00424785

PATIENT
  Age: 53 Year
  Sex: Female

DRUGS (1)
  1. TYSABRI [Suspect]
     Active Substance: NATALIZUMAB
     Indication: MULTIPLE SCLEROSIS
     Dosage: INFUSED OVER ONE HOUR
     Route: 050
     Dates: start: 20100721

REACTIONS (3)
  - Anaemia macrocytic [Not Recovered/Not Resolved]
  - Leukaemia [Unknown]
  - T-lymphocyte count increased [Not Recovered/Not Resolved]

NARRATIVE: CASE EVENT DATE: 201612
